FAERS Safety Report 6892964-1 (Version None)
Quarter: 2010Q3

REPORT INFORMATION
  Report Type: 
  Country: None (occurrence: None)
  Receive Date: 20100731
  Receipt Date: 20081124
  Transmission Date: 20110219
  Serious: No
  Sender: FDA-Public Use
  Company Number: US-PFIZER INC-2008094326

PATIENT
  Sex: Male
  Weight: 79.5 kg

DRUGS (4)
  1. NEURONTIN [Suspect]
     Indication: TRIGEMINAL NEURALGIA
     Dates: start: 20070601
  2. DRUG, UNSPECIFIED [Concomitant]
     Indication: COLITIS ULCERATIVE
  3. LYRICA [Concomitant]
  4. ASACOL [Concomitant]

REACTIONS (2)
  - DRUG INEFFECTIVE [None]
  - SOMNOLENCE [None]
